FAERS Safety Report 7158911-2 (Version None)
Quarter: 2010Q4

REPORT INFORMATION
  Report Type: 
  Country: None (occurrence: None)
  Receive Date: 20101214
  Receipt Date: 20100719
  Transmission Date: 20110411
  Serious: No
  Sender: FDA-Public Use
  Company Number: US-ASTRAZENECA-2010SE33495

PATIENT
  Age: 65 Year
  Sex: Female
  Weight: 68 kg

DRUGS (6)
  1. CRESTOR [Suspect]
     Route: 048
  2. CRESTOR [Suspect]
     Route: 048
  3. GLIPIZIDE [Concomitant]
     Indication: DIABETES MELLITUS
  4. PAXIL [Concomitant]
  5. CO Q10 [Concomitant]
     Indication: CARDIAC DISORDER
  6. VITAMINS [Concomitant]

REACTIONS (1)
  - CAROTID ARTERY OCCLUSION [None]
